FAERS Safety Report 8292838-8 (Version None)
Quarter: 2012Q2

REPORT INFORMATION
  Report Type: 
  Country: None (occurrence: None)
  Receive Date: 20120417
  Receipt Date: 20111027
  Transmission Date: 20120825
  Serious: Yes (Other)
  Sender: FDA-Public Use
  Company Number: US-ASTRAZENECA-2011SE65193

PATIENT
  Age: 64 Year
  Sex: Male
  Weight: 105.2 kg

DRUGS (3)
  1. MAGNESIUM [Concomitant]
     Indication: BLOOD MAGNESIUM DECREASED
     Route: 042
     Dates: start: 20110201
  2. MAGNESIUM [Concomitant]
     Route: 042
     Dates: start: 20110201
  3. NEXIUM [Suspect]
     Indication: GASTROOESOPHAGEAL REFLUX DISEASE
     Route: 048
     Dates: start: 20030101

REACTIONS (3)
  - BLOOD MAGNESIUM DECREASED [None]
  - MUSCLE SPASMS [None]
  - MUSCULAR WEAKNESS [None]
